FAERS Safety Report 25191496 (Version 1)
Quarter: 2025Q2

REPORT INFORMATION
  Report Type: Spontaneous
  Country: US (occurrence: None)
  Receive Date: 20250412
  Receipt Date: 20250412
  Transmission Date: 20250716
  Serious: Yes (Hospitalization)
  Sender: FDA-CTU
  Company Number: None

PATIENT
  Age: 76 Year
  Sex: Male
  Weight: 95.4 kg

DRUGS (12)
  1. PREGABALIN [Suspect]
     Active Substance: PREGABALIN
     Indication: Neuralgia
  2. Auto-Servo Ventilation sleep machine [Concomitant]
  3. APIXABAN [Concomitant]
     Active Substance: APIXABAN
  4. HYDROCHLOROTHIAZIDE [Concomitant]
     Active Substance: HYDROCHLOROTHIAZIDE
  5. LOSARTAN [Concomitant]
     Active Substance: LOSARTAN
  6. METHOCARBAMOL [Concomitant]
     Active Substance: METHOCARBAMOL
  7. ROSUVASTATIN [Concomitant]
     Active Substance: ROSUVASTATIN
  8. MULTI-VITAMIN [Concomitant]
     Active Substance: .ALPHA.-TOCOPHEROL ACETATE, DL-\ASCORBIC ACID\CYANOCOBALAMIN\FLUORIDE ION\FOLIC ACID\NIACIN\PYRIDOXI
  9. COENZYME Q10 [Concomitant]
     Active Substance: DIETARY SUPPLEMENT\UBIDECARENONE
  10. ACETAMINOPHEN [Concomitant]
     Active Substance: ACETAMINOPHEN
  11. CALCIUM CARBONATE\VITAMIN D [Concomitant]
     Active Substance: CALCIUM CARBONATE\VITAMIN D
  12. MELATONIN [Concomitant]
     Active Substance: MELATONIN

REACTIONS (5)
  - Dizziness [None]
  - Loss of consciousness [None]
  - Fall [None]
  - Somnolence [None]
  - Bundle branch block [None]

NARRATIVE: CASE EVENT DATE: 20250404
